FAERS Safety Report 24435892 (Version 1)
Quarter: 2024Q4

REPORT INFORMATION
  Report Type: Spontaneous
  Country: US (occurrence: US)
  Receive Date: 20241015
  Receipt Date: 20241015
  Transmission Date: 20250114
  Serious: Yes (Life-Threatening, Hospitalization, Other)
  Sender: HIKMA
  Company Number: US-MLMSERVICE-20240923-PI202492-00072-1

PATIENT

DRUGS (3)
  1. BUPIVACAINE [Suspect]
     Active Substance: BUPIVACAINE
     Indication: Nerve block
     Dosage: UNKNOWN
     Route: 065
  2. EXPAREL [Suspect]
     Active Substance: BUPIVACAINE
     Indication: Nerve block
     Dosage: BUPIVACAINE LIPOSOME INJECTABLE SUSPENSION
     Route: 065
  3. ROPIVACAINE [Concomitant]
     Active Substance: ROPIVACAINE
     Indication: Nerve block
     Dosage: UNKNOWN
     Route: 065

REACTIONS (5)
  - Mental status changes [Unknown]
  - Generalised tonic-clonic seizure [Unknown]
  - Myoclonus [Unknown]
  - Hypotension [Recovered/Resolved]
  - Local anaesthetic systemic toxicity [Unknown]
